FAERS Safety Report 8435483-3 (Version None)
Quarter: 2012Q2

REPORT INFORMATION
  Report Type: 
  Country: None (occurrence: None)
  Receive Date: 20120614
  Receipt Date: 20120606
  Transmission Date: 20120825
  Serious: Yes (Hospitalization, Other)
  Sender: FDA-Public Use
  Company Number: US-BAYER-2011-027219

PATIENT
  Age: 22 Year
  Sex: Female
  Weight: 92.517 kg

DRUGS (17)
  1. YAZ [Suspect]
     Indication: ORAL CONTRACEPTION
     Dosage: UNK
     Route: 048
     Dates: start: 20070601, end: 20090327
  2. YAZ [Suspect]
  3. YASMIN [Suspect]
     Indication: PREMENSTRUAL SYNDROME
     Dosage: UNK
  4. YASMIN [Suspect]
  5. MULTI-VITAMIN [Concomitant]
     Dosage: 1 TAB ONCE A DAY UNK, QD
     Route: 048
     Dates: start: 20090218
  6. LEVAQUIN [Concomitant]
     Dosage: 500 MG DAILY FOR TWO WEEKS, UNK
  7. FLAGYL [Concomitant]
     Dosage: 500 MG EVERY 8 HOURS FOR TWO MORE WEEKS, UNK
  8. PERCOCET [Concomitant]
     Dosage: 1 TO 2 TABLETS Q 4 HOURS, PRN
  9. YAZ [Suspect]
     Indication: ACNE
  10. CIPROFLOXACIN [Concomitant]
     Dosage: 250 MG 1 TABLET TWICE DAILY FOR 7 DAYS, BID
     Route: 048
     Dates: start: 20090313
  11. ANTIBIOTICS [Concomitant]
  12. YAZ [Suspect]
     Indication: PREMENSTRUAL SYNDROME
  13. YASMIN [Suspect]
     Indication: CONTRACEPTION
  14. MOTRIN [Concomitant]
     Dosage: UNK
     Route: 048
     Dates: start: 20090315
  15. YASMIN [Suspect]
     Indication: ACNE
  16. FLUCONAZOLE [Concomitant]
     Dosage: 150 MG, UNK
     Route: 048
     Dates: start: 20090313
  17. ADVIL [Concomitant]
     Dosage: 200 MG 2 TABS, PRN
     Route: 048
     Dates: start: 20090218

REACTIONS (13)
  - CHOLELITHIASIS [None]
  - PYELONEPHRITIS [None]
  - FLANK PAIN [None]
  - LOCALISED INTRAABDOMINAL FLUID COLLECTION [None]
  - ABDOMINAL PAIN UPPER [None]
  - CHEST PAIN [None]
  - PULMONARY EMBOLISM [None]
  - CHOLECYSTITIS ACUTE [None]
  - ABSCESS [None]
  - DEEP VEIN THROMBOSIS [None]
  - NAUSEA [None]
  - DYSPNOEA [None]
  - PYREXIA [None]
